FAERS Safety Report 9068582 (Version 1)
Quarter: 2013Q1

REPORT INFORMATION
  Report Type: Spontaneous
  Country: US (occurrence: US)
  Receive Date: 20130206
  Receipt Date: 20130206
  Transmission Date: 20140127
  Serious: Yes (Death)
  Sender: FDA-Public Use
  Company Number: US-OTSUKA-US-2013-10173

PATIENT
  Sex: Male

DRUGS (9)
  1. SAMSCA [Suspect]
     Indication: FLUID RETENTION
     Dosage: 30 MG MILLIGRAM(S), UNK
     Dates: start: 201110
  2. POTASSIUM [Concomitant]
  3. SENNA PLUS [Concomitant]
  4. COUMADIN [Concomitant]
     Dosage: 1 MG MILLIGRAM(S), UNK
  5. CELEXA [Concomitant]
     Dosage: 40 MG MILLIGRAM(S), UNK
  6. LASIX [Concomitant]
     Dosage: 80 MG MILLIGRAM(S), UNK
  7. SPIRONOLACTONE [Concomitant]
     Dosage: 25 MG MILLIGRAM(S), TID
  8. PREDNISONE [Concomitant]
     Dosage: 10 MG MILLIGRAM(S), UNK
  9. COLACE [Concomitant]

REACTIONS (1)
  - Blood sodium decreased [Fatal]
